FAERS Safety Report 14849447 (Version 3)
Quarter: 2018Q3

REPORT INFORMATION
  Report Type: Spontaneous
  Country: US (occurrence: US)
  Receive Date: 20180504
  Receipt Date: 20180830
  Transmission Date: 20181010
  Serious: Yes (Death, Hospitalization)
  Sender: FDA-Public Use
  Company Number: US-IMPAX LABORATORIES, INC-2018-IPXL-01487

PATIENT
  Age: 89 Year
  Sex: Male

DRUGS (2)
  1. RYTARY [Suspect]
     Active Substance: CARBIDOPA\LEVODOPA
     Dosage: 36.25/145 MG TWO CAPSULE, FOUR TIMES A DAY
     Route: 065
  2. RYTARY [Suspect]
     Active Substance: CARBIDOPA\LEVODOPA
     Indication: PARKINSON^S DISEASE
     Dosage: 36.25/145 MG TWO CAPSULE, FOUR TIMES A DAY
     Route: 065

REACTIONS (2)
  - Toxic encephalopathy [Unknown]
  - Death [Fatal]

NARRATIVE: CASE EVENT DATE: 201804
